FAERS Safety Report 19847008 (Version 1)
Quarter: 2021Q3

REPORT INFORMATION
  Report Type: Spontaneous
  Country: DE (occurrence: DE)
  Receive Date: 20210917
  Receipt Date: 20210917
  Transmission Date: 20211014
  Serious: Yes (Hospitalization)
  Sender: FDA-Public Use
  Company Number: DE-009507513-2109DEU003019

PATIENT
  Age: 79 Year
  Sex: Female
  Weight: 116 kg

DRUGS (15)
  1. JANUVIA [Suspect]
     Active Substance: SITAGLIPTIN PHOSPHATE
     Dosage: UNK, 50 MG, 1?0?0?0, TABLETS
     Route: 048
  2. RASILEZ [Suspect]
     Active Substance: ALISKIREN
     Dosage: UNK, 300 MG, 1?0?0?0, TABLETS, MEDICATION ERRORS
     Route: 048
  3. SALBUTAMOL [Concomitant]
     Active Substance: ALBUTEROL
     Dosage: UNK, 0.1 MG, 1?1?1?0, METERED DOSE AEROSOL
     Route: 055
  4. MONTELUKAST [Concomitant]
     Active Substance: MONTELUKAST SODIUM
     Dosage: UNK, 10 MG, 0?0?1?0, TABLETS
     Route: 048
  5. TIMO?COMOD [Concomitant]
     Dosage: UNK, 0.5, 1?0?1?0, EYE DROPS
     Route: 047
  6. ZOPICLON [Concomitant]
     Active Substance: ZOPICLONE
     Dosage: UNK, 7.5 MG, 0?0?0?0.5, TABLETS
     Route: 048
  7. OXAZEPAM. [Concomitant]
     Active Substance: OXAZEPAM
     Dosage: UNK, 50 MG, 0?0?0?1, TABLETS
     Route: 048
  8. MELPERON [Concomitant]
     Active Substance: MELPERONE
     Dosage: UNK, 25 MG, 0?0?1?1, TABLETS
     Route: 048
  9. METOPROLOL. [Concomitant]
     Active Substance: METOPROLOL
     Dosage: UNK, 95 MG, 0.5?0?0.5?0, RETARD TABLETTEN
     Route: 048
  10. PANTOPRAZOLE [Concomitant]
     Active Substance: PANTOPRAZOLE
     Dosage: UNK, 20 MG, 1?0?0?0, TABLETS
     Route: 048
  11. SIOFOR [Concomitant]
     Active Substance: METFORMIN HYDROCHLORIDE
     Dosage: UNK, 500 MG, 0?0?1?0, TABLETS
     Route: 048
  12. FOSTER [Concomitant]
     Active Substance: BECLOMETHASONE\FORMOTEROL
     Dosage: UNK, 100/6 MICROGRAM, 2?0?0?2, METERED DOSE AEROSOL
     Route: 055
  13. NOVAMINSULFON 1 A PHARMA [Concomitant]
     Active Substance: METAMIZOLE SODIUM
     Dosage: UNK, 500 MG, 1?0?0?0, TABLETS
     Route: 048
  14. NIFEDIPIN [Concomitant]
     Active Substance: NIFEDIPINE
     Dosage: UNK, 10 MG, 1?0?0?0, RETARD TABLETS
     Route: 048
  15. SPIRIVA RESPIMAT [Concomitant]
     Active Substance: TIOTROPIUM BROMIDE
     Dosage: UNK, 2.5 MICROGRAM, 1?0?0?0, INHALATION SOLUTION
     Route: 055

REACTIONS (4)
  - Product prescribing error [Unknown]
  - Nausea [Unknown]
  - Dyspnoea [Unknown]
  - Diarrhoea [Unknown]
